FAERS Safety Report 7056833-9 (Version None)
Quarter: 2010Q4

REPORT INFORMATION
  Report Type: 
  Country: None (occurrence: None)
  Receive Date: 20101022
  Receipt Date: 20100514
  Transmission Date: 20110411
  Serious: No
  Sender: FDA-Public Use
  Company Number: A0860890A

PATIENT
  Sex: Female

DRUGS (1)
  1. DUAC [Suspect]
     Indication: ACNE
     Route: 061
     Dates: start: 20100322

REACTIONS (4)
  - ACNE [None]
  - BURNING SENSATION [None]
  - PAIN OF SKIN [None]
  - RASH MACULAR [None]
